FAERS Safety Report 7062561-6 (Version None)
Quarter: 2010Q4

REPORT INFORMATION
  Report Type: 
  Country: None (occurrence: None)
  Receive Date: 20101026
  Receipt Date: 20091125
  Transmission Date: 20110411
  Serious: No
  Sender: FDA-Public Use
  Company Number: US-PFIZER INC-2009303953

PATIENT
  Sex: Female

DRUGS (3)
  1. LIPITOR [Suspect]
  2. LASIX [Suspect]
  3. BENAZEPRIL HYDROCHLORIDE [Suspect]

REACTIONS (2)
  - BLOOD PRESSURE INCREASED [None]
  - HEADACHE [None]
